FAERS Safety Report 9896084 (Version 1)
Quarter: 2014Q1

REPORT INFORMATION
  Report Type: Spontaneous
  Country: US (occurrence: US)
  Receive Date: 20140213
  Receipt Date: 20140213
  Transmission Date: 20141002
  Serious: No
  Sender: FDA-Public Use
  Company Number: US-BRISTOL-MYERS SQUIBB COMPANY-19047570

PATIENT
  Age: 55 Year
  Sex: Female
  Weight: 180 kg

DRUGS (11)
  1. ABATACEPT SUBQ INJECTION 125MG/ML [Suspect]
     Dosage: 1 DF=125 MG/ML
  2. PLAQUENIL [Concomitant]
     Dosage: TABS
  3. AMBIEN [Concomitant]
     Dosage: TABS
  4. LYRICA [Concomitant]
     Dosage: CAPS
  5. NEXIUM [Concomitant]
     Dosage: CAPS
  6. CLONIDINE [Concomitant]
     Dosage: TABS
  7. CELEXA [Concomitant]
     Dosage: TABS
  8. METHOTREXATE [Concomitant]
     Dosage: 1 DF=50 MG/ML?INJ
  9. VITAMIN D [Concomitant]
     Dosage: CAPS?1 DF=1000 UNITS
  10. PERCOCET TABS 5 MG/325 MG [Concomitant]
  11. EVOXAC [Concomitant]
     Dosage: CAPS

REACTIONS (1)
  - Drug ineffective [Unknown]
